FAERS Safety Report 17310417 (Version 3)
Quarter: 2020Q1

REPORT INFORMATION
  Report Type: Report from Study
  Country: US (occurrence: US)
  Receive Date: 20200123
  Receipt Date: 20200327
  Transmission Date: 20200409
  Serious: Yes (Hospitalization)
  Sender: FDA-Public Use
  Company Number: US-OTSUKA-2019_041552

PATIENT
  Sex: Female

DRUGS (1)
  1. TOLVAPTAN [Suspect]
     Active Substance: TOLVAPTAN
     Indication: PRODUCT USED FOR UNKNOWN INDICATION
     Dosage: UNK
     Route: 065
     Dates: start: 20191031

REACTIONS (10)
  - Limb injury [Unknown]
  - Blood potassium decreased [Unknown]
  - Hypertension [Recovering/Resolving]
  - Heart rate decreased [Recovering/Resolving]
  - Headache [Not Recovered/Not Resolved]
  - Psoriasis [Unknown]
  - Peripheral swelling [Unknown]
  - Fatigue [Unknown]
  - Memory impairment [Unknown]
  - Therapy cessation [Unknown]

NARRATIVE: CASE EVENT DATE: 20191205
